FAERS Safety Report 6710774-2 (Version None)
Quarter: 2010Q2

REPORT INFORMATION
  Report Type: 
  Country: None (occurrence: None)
  Receive Date: 20100505
  Receipt Date: 20100428
  Transmission Date: 20101027
  Serious: Yes (Hospitalization, Other)
  Sender: FDA-Public Use
  Company Number: FR-BRISTOL-MYERS SQUIBB COMPANY-15084361

PATIENT
  Age: 80 Year
  Sex: Female

DRUGS (7)
  1. COUMADIN [Suspect]
     Indication: ATRIAL FIBRILLATION
     Dosage: INTERRUPTED ON 17MAR2010;RECHALLENGED AT ? TABLET IN THE EVENING
  2. IRBESARTAN [Suspect]
     Dates: end: 20100322
  3. AMIODARONE HCL [Suspect]
     Indication: ATRIAL FIBRILLATION
     Dosage: EXCEPT ON SATURDAY AND SUNDAY
     Dates: start: 20091106
  4. BECLOMETHASONE DIPROPIONATE [Concomitant]
     Dosage: BECLOMETASONE DIPROPIONATE
  5. OXEOL [Concomitant]
  6. ATHYMIL [Concomitant]
  7. SPIRIVA [Concomitant]

REACTIONS (4)
  - EPISTAXIS [None]
  - HAEMATOMA [None]
  - HYPOTENSION [None]
  - INTERNATIONAL NORMALISED RATIO INCREASED [None]
